FAERS Safety Report 7113867-3 (Version None)
Quarter: 2010Q4

REPORT INFORMATION
  Report Type: 
  Country: None (occurrence: None)
  Receive Date: 20101119
  Receipt Date: 20101108
  Transmission Date: 20110411
  Serious: Yes (Hospitalization)
  Sender: FDA-Public Use
  Company Number: GXKR2010FR12734

PATIENT
  Sex: Male

DRUGS (14)
  1. VANCOMYCIN [Suspect]
     Indication: ANTIBIOTIC THERAPY
     Dosage: 2.5 G, QD
     Route: 042
     Dates: start: 20100917, end: 20100920
  2. DEROXAT [Concomitant]
     Dosage: UNK
     Dates: start: 20100501
  3. PLITICAN [Concomitant]
  4. VALACICLOVIR [Concomitant]
  5. HEPARIN [Concomitant]
     Dosage: UNFRACTIONATED
  6. TINZAPARIN [Concomitant]
  7. TIORFAN [Concomitant]
  8. SMECTITE [Concomitant]
  9. XYZAL [Concomitant]
  10. POLARAMINE [Concomitant]
  11. SPASFON [Concomitant]
  12. LARGACTIL [Concomitant]
  13. TRAMADOL HCL [Concomitant]
  14. OXYNORM [Concomitant]

REACTIONS (7)
  - CHEILITIS [None]
  - DERMATITIS EXFOLIATIVE [None]
  - DRUG RASH WITH EOSINOPHILIA AND SYSTEMIC SYMPTOMS [None]
  - FACE OEDEMA [None]
  - HISTIOCYTOSIS HAEMATOPHAGIC [None]
  - NEUTROPENIA [None]
  - THROMBOCYTOPENIA [None]
